FAERS Safety Report 18664216 (Version 2)
Quarter: 2021Q1

REPORT INFORMATION
  Report Type: Not Available
  Country: US (occurrence: US)
  Receive Date: 20201225
  Receipt Date: 20210115
  Transmission Date: 20210419
  Serious: No
  Sender: FDA-Public Use
  Company Number: US-NEUROCRINE BIOSCIENCES INC.-2020NBI04702

PATIENT
  Age: 70 Year
  Sex: Male

DRUGS (12)
  1. ZAFIRLUKAST. [Concomitant]
     Active Substance: ZAFIRLUKAST
  2. INGREZZA [Suspect]
     Active Substance: VALBENAZINE
     Indication: TARDIVE DYSKINESIA
     Route: 048
     Dates: start: 20170608, end: 202012
  3. OXYCODONE [Concomitant]
     Active Substance: OXYCODONE
  4. OMEPRAZOLE. [Concomitant]
     Active Substance: OMEPRAZOLE
  5. AMLODIPINE [Concomitant]
     Active Substance: AMLODIPINE BESYLATE
  6. ATORVASTATIN [Concomitant]
     Active Substance: ATORVASTATIN
  7. EFFIENT [Concomitant]
     Active Substance: PRASUGREL HYDROCHLORIDE
  8. METOPROLOL. [Concomitant]
     Active Substance: METOPROLOL
  9. PREDNISONE. [Concomitant]
     Active Substance: PREDNISONE
  10. DULOXETINE. [Concomitant]
     Active Substance: DULOXETINE
  11. LISINOPRIL. [Concomitant]
     Active Substance: LISINOPRIL
  12. ASPRIN [Concomitant]
     Active Substance: ASPIRIN

REACTIONS (4)
  - Drooling [Unknown]
  - Tardive dyskinesia [Unknown]
  - Emotional disorder [Unknown]
  - Crying [Unknown]
